FAERS Safety Report 7980839-6 (Version None)
Quarter: 2011Q4

REPORT INFORMATION
  Report Type: 
  Country: None (occurrence: None)
  Receive Date: 20111214
  Receipt Date: 20111206
  Transmission Date: 20120403
  Serious: Yes (Disabling, Other)
  Sender: FDA-Public Use
  Company Number: US-AMGEN-USASP2011030636

PATIENT
  Age: 60 Year
  Sex: Male

DRUGS (2)
  1. ENBREL [Suspect]
     Indication: PSORIATIC ARTHROPATHY
     Dosage: 50 MG, QWK
     Dates: end: 20111202
  2. ENBREL [Suspect]
     Dosage: 50 MG, QWK
     Dates: start: 20110613, end: 20111202

REACTIONS (4)
  - SCLERITIS [None]
  - PSORIASIS [None]
  - SKIN INFECTION [None]
  - SINUSITIS [None]
